FAERS Safety Report 9172629 (Version 1)
Quarter: 2012Q4

REPORT INFORMATION
  Report Type: 
  Country: US (occurrence: US)
  Receive Date: 20120911
  Receipt Date: 20120911
  Transmission Date: 20130627
  Serious: Yes (Other)
  Sender: FDA-Public Use
  Company Number: PHEH2012US017363

PATIENT
  Sex: Male

DRUGS (3)
  1. DIOVAN HCT [Suspect]
     Indication: HYPERTENSION
  2. SPIRIVA [Suspect]
     Dosage: UNK
  3. CARTAVIL [Suspect]

REACTIONS (1)
  - Myocardial infarction [Unknown]
